FAERS Safety Report 9051610 (Version 3)
Quarter: 2013Q2

REPORT INFORMATION
  Report Type: Spontaneous
  Country: US (occurrence: US)
  Receive Date: 20130207
  Receipt Date: 20130418
  Transmission Date: 20140414
  Serious: No
  Sender: FDA-Public Use
  Company Number: US-BIOGENIDEC-2013BI009341

PATIENT
  Age: 50 Year
  Sex: Female

DRUGS (1)
  1. TYSABRI [Suspect]
     Indication: MULTIPLE SCLEROSIS
     Route: 042
     Dates: start: 20120625

REACTIONS (12)
  - Adverse reaction [Unknown]
  - Back pain [Unknown]
  - Pain in extremity [Unknown]
  - Psychomotor hyperactivity [Unknown]
  - Discomfort [Unknown]
  - Anxiety [Unknown]
  - Flushing [Unknown]
  - Hypoaesthesia [Recovered/Resolved]
  - Heart rate increased [Unknown]
  - Paraesthesia [Recovered/Resolved]
  - Chills [Unknown]
  - Hypertension [Unknown]
